FAERS Safety Report 4666162-6 (Version None)
Quarter: 2005Q2

REPORT INFORMATION
  Report Type: 
  Country: None (occurrence: None)
  Receive Date: 20050517
  Receipt Date: 20050517
  Transmission Date: 20051028
  Serious: No
  Sender: FDA-Public Use
  Company Number: None

PATIENT
  Age: 36 Year
  Sex: Male
  Weight: 47.537 kg

DRUGS (2)
  1. VALIUM [Suspect]
     Indication: DYSKINESIA
     Dates: start: 20050312, end: 20050316
  2. DILANTIN [Concomitant]

REACTIONS (3)
  - ANTICONVULSANT DRUG LEVEL INCREASED [None]
  - CARDIO-RESPIRATORY ARREST [None]
  - UNRESPONSIVE TO VERBAL STIMULI [None]
